FAERS Safety Report 5598550-8 (Version None)
Quarter: 2008Q1

REPORT INFORMATION
  Report Type: 
  Country: None (occurrence: None)
  Receive Date: 20080122
  Receipt Date: 20080117
  Transmission Date: 20080703
  Serious: Yes (Hospitalization)
  Sender: FDA-Public Use
  Company Number: GB-SANOFI-SYNTHELABO-F01200700691

PATIENT
  Sex: Female

DRUGS (6)
  1. DIFFLAM [Concomitant]
     Dosage: UNK
     Dates: start: 20070226
  2. BONJELA [Concomitant]
     Dosage: UNK
     Dates: start: 20070424
  3. LOPERAMIDE HCL [Concomitant]
     Dosage: UNK
     Dates: start: 20070322
  4. FLUOROURACIL [Suspect]
     Dosage: 650 MG BOLUS FOLLOWED BY 975 MG INFUSION ON DAYS 1 AND 2
     Route: 042
     Dates: start: 20070514, end: 20070515
  5. LEUCOVORIN [Suspect]
     Dosage: D1-2
     Route: 042
     Dates: start: 20070514, end: 20070515
  6. OXALIPLATIN [Suspect]
     Indication: COLON CANCER
     Route: 042
     Dates: start: 20070514, end: 20070514

REACTIONS (1)
  - ARTERIOSPASM CORONARY [None]
